FAERS Safety Report 22104840 (Version 1)
Quarter: 2023Q1

REPORT INFORMATION
  Report Type: Report from Study
  Country: GB (occurrence: GB)
  Receive Date: 20230316
  Receipt Date: 20230316
  Transmission Date: 20230418
  Serious: Yes (Other)
  Sender: FDA-Public Use
  Company Number: GB-LEO Pharma-348945

PATIENT
  Age: 48 Year
  Sex: Female

DRUGS (5)
  1. BRODALUMAB [Suspect]
     Active Substance: BRODALUMAB
     Indication: Psoriasis
     Dosage: WEEKS 0, 1, AND 2 FOLLOWED BY EVERY 2 WEEKS
     Route: 058
     Dates: start: 20221012, end: 202301
  2. NAPROXEN [Concomitant]
     Active Substance: NAPROXEN
     Indication: Psoriatic arthropathy
  3. LANSOPRAZOLE [Concomitant]
     Active Substance: LANSOPRAZOLE
     Indication: Prophylaxis
  4. MONTELUKAST [Concomitant]
     Active Substance: MONTELUKAST SODIUM
     Indication: Asthma
  5. DULOXETINE [Concomitant]
     Active Substance: DULOXETINE
     Indication: Depression

REACTIONS (6)
  - Immobile [Recovering/Resolving]
  - Blister [Recovering/Resolving]
  - Condition aggravated [Recovering/Resolving]
  - Finger deformity [Recovering/Resolving]
  - Arthralgia [Recovering/Resolving]
  - Therapy cessation [Recovering/Resolving]

NARRATIVE: CASE EVENT DATE: 20221101
